FAERS Safety Report 17881508 (Version 1)
Quarter: 2020Q2

REPORT INFORMATION
  Report Type: Spontaneous
  Country: US (occurrence: US)
  Receive Date: 20200610
  Receipt Date: 20200610
  Transmission Date: 20200714
  Serious: No
  Sender: FDA-Public Use
  Company Number: US-COLLEGIUM PHARMACEUTICAL, INC.-2020CGM00008

PATIENT
  Age: 60 Year
  Sex: Female

DRUGS (2)
  1. HYDROCODONE-ACETAMINOPHEN [Concomitant]
     Active Substance: ACETAMINOPHEN\HYDROCODONE
     Dosage: 1 DOSAGE UNITS, 6X/DAY (EVERY 4 HOURS, AS NEEDED)
     Dates: start: 2015
  2. XTAMPZA ER [Suspect]
     Active Substance: OXYCODONE
     Indication: ARTHRALGIA
     Dosage: 27 MG, 2X/DAY (EVERY 12 HOURS)
     Route: 048
     Dates: start: 20200113

REACTIONS (1)
  - Therapeutic product effect incomplete [Not Recovered/Not Resolved]

NARRATIVE: CASE EVENT DATE: 20200113
